FAERS Safety Report 12608435 (Version 2)
Quarter: 2017Q1

REPORT INFORMATION
  Report Type: Report from Study
  Country: None (occurrence: CH)
  Receive Date: 20160729
  Receipt Date: 20170116
  Transmission Date: 20170428
  Serious: Yes (Hospitalization)
  Sender: FDA-Public Use
  Company Number: CH-ABBVIE-16K-151-1686981-00

PATIENT
  Age: 80 Year
  Sex: Female

DRUGS (1)
  1. DUODOPA [Suspect]
     Active Substance: CARBIDOPA\LEVODOPA
     Indication: PARKINSON^S DISEASE
     Dosage: 1 CASSETTE PER DAY, 24H THERAPY, MD:4 ML, CR DAY:3.2ML/H,CR NIGHT:1.5ML/H, ED:1ML
     Route: 050
     Dates: start: 20140929, end: 20160625

REACTIONS (6)
  - Mania [Unknown]
  - Mental disorder [Unknown]
  - Unintentional medical device removal [Unknown]
  - Device dislocation [Unknown]
  - Device connection issue [Unknown]
  - Hallucination [Unknown]

NARRATIVE: CASE EVENT DATE: 201409
